FAERS Safety Report 5118941-9 (Version None)
Quarter: 2006Q3

REPORT INFORMATION
  Report Type: 
  Country: None (occurrence: None)
  Receive Date: 20060927
  Receipt Date: 20060911
  Transmission Date: 20061208
  Serious: Yes (Other)
  Sender: FDA-Public Use
  Company Number: 3153

PATIENT
  Age: 39 Year
  Sex: Male

DRUGS (1)
  1. AMNESTEEM [Suspect]
     Dosage: 7 MONTH AGO

REACTIONS (1)
  - TRANSMISSION OF DRUG VIA SEMEN [None]
